FAERS Safety Report 6252131-1 (Version None)
Quarter: 2009Q2

REPORT INFORMATION
  Report Type: 
  Country: None (occurrence: None)
  Receive Date: 20090630
  Receipt Date: 20060905
  Transmission Date: 20091009
  Serious: Yes (Death)
  Sender: FDA-Public Use
  Company Number: US-ROCHE-639144

PATIENT
  Sex: Male

DRUGS (7)
  1. ENFUVIRTIDE [Suspect]
     Route: 065
     Dates: start: 20041015, end: 20060101
  2. KALETRA [Concomitant]
     Dates: start: 20041015, end: 20060101
  3. TRUVADA [Concomitant]
     Dosage: FREQUENCY: QD
     Dates: start: 20041015, end: 20060101
  4. FLUCONAZOLE [Concomitant]
     Dosage: FREQUENCY: QD
     Dates: start: 20030501, end: 20060101
  5. VALGANCICLOVIR HCL [Concomitant]
     Dates: start: 20040909, end: 20060101
  6. BACTRIM DS [Concomitant]
     Dosage: FREQUENCY: QD
     Dates: start: 20041015, end: 20060101
  7. ZITHROMAX [Concomitant]
     Dates: start: 20050617, end: 20060101

REACTIONS (1)
  - DEATH [None]
